FAERS Safety Report 16840774 (Version 4)
Quarter: 2020Q4

REPORT INFORMATION
  Report Type: Report from Study
  Country: AU (occurrence: AU)
  Receive Date: 20190923
  Receipt Date: 20201207
  Transmission Date: 20210113
  Serious: Yes (Hospitalization)
  Sender: FDA-Public Use
  Company Number: AU-PFIZER INC-2019391409

PATIENT
  Age: 26 Year
  Sex: Female
  Weight: 55 kg

DRUGS (15)
  1. POSACONAZOLE [Concomitant]
     Active Substance: POSACONAZOLE
     Indication: ANTIFUNGAL PROPHYLAXIS
     Dosage: UNK
     Dates: start: 20190702
  2. GENTAMICIN SULFATE. [Suspect]
     Active Substance: GENTAMICIN SULFATE
     Indication: ENTEROCOCCAL INFECTION
     Dosage: 280 MG, 1X/DAY
     Route: 042
     Dates: start: 20190828, end: 20190828
  3. VALACICLOVIR [Concomitant]
     Active Substance: VALACYCLOVIR HYDROCHLORIDE
     Indication: ANTIVIRAL PROPHYLAXIS
     Dosage: UNK
     Dates: start: 20190706
  4. CYTARABINE. [Suspect]
     Active Substance: CYTARABINE
     Dosage: 4.65 G, OVER 3 HOURS TWICE DAILY ON DAYS 1, 3, 5
     Route: 042
     Dates: start: 20190813, end: 20190818
  5. KEFLEX [Suspect]
     Active Substance: CEPHALEXIN
     Indication: ENTEROCOCCAL INFECTION
     Dosage: 500 MG, 4X/DAY
     Route: 048
     Dates: start: 20190903, end: 20190906
  6. PANTOPRAZOLE [Concomitant]
     Active Substance: PANTOPRAZOLE
     Indication: GASTROOESOPHAGEAL REFLUX DISEASE
     Dosage: UNK
     Dates: start: 20190707
  7. PARACETAMOL [Concomitant]
     Active Substance: ACETAMINOPHEN
     Indication: PAIN
     Dosage: UNK
     Dates: start: 20190625
  8. CYTARABINE. [Suspect]
     Active Substance: CYTARABINE
     Indication: ACUTE MYELOID LEUKAEMIA
     Dosage: 160 MG, DAILY BY CONTINUOUS INFUSION
     Route: 041
     Dates: start: 20190703, end: 20190710
  9. GLASDEGIB [Suspect]
     Active Substance: GLASDEGIB
     Indication: ACUTE MYELOID LEUKAEMIA
     Dosage: 100 MG, ONCE DAILY CONTINUOUS
     Route: 048
     Dates: start: 20190703
  10. TAZOCIN EF [Suspect]
     Active Substance: PIPERACILLIN SODIUM\TAZOBACTAM SODIUM
     Indication: ENTEROCOCCAL INFECTION
     Dosage: 4.5 G, 4X/DAY
     Route: 042
     Dates: start: 20190826, end: 20190902
  11. ZOLADEX [Concomitant]
     Active Substance: GOSERELIN ACETATE
     Indication: ASSISTED FERTILISATION
     Dosage: UNK
     Dates: start: 20190703
  12. DAUNORUBICIN [Suspect]
     Active Substance: DAUNORUBICIN
     Indication: ACUTE MYELOID LEUKAEMIA
     Dosage: 96 MG, OVER 3 HOURS TWICE DAILY ON DAYS 1, 3, 5
     Route: 041
     Dates: start: 20190703, end: 20190705
  13. AMPICILLIN [Suspect]
     Active Substance: AMPICILLIN
     Indication: ENTEROCOCCAL INFECTION
     Dosage: 2 G, 3X/DAY
     Route: 042
     Dates: start: 20190902, end: 20190903
  14. NORETHISTERONE [Concomitant]
     Active Substance: NORETHINDRONE
     Indication: VAGINAL HAEMORRHAGE
     Dosage: UNK
     Dates: start: 20190701
  15. ONDANSETRON [Concomitant]
     Active Substance: ONDANSETRON
     Indication: NAUSEA
     Dosage: UNK
     Dates: start: 20190702

REACTIONS (1)
  - Clostridium difficile colitis [Recovered/Resolved]

NARRATIVE: CASE EVENT DATE: 20190907
